FAERS Safety Report 13587604 (Version 1)
Quarter: 2017Q2

REPORT INFORMATION
  Report Type: Spontaneous
  Country: US (occurrence: US)
  Receive Date: 20170526
  Receipt Date: 20170526
  Transmission Date: 20170830
  Serious: Yes (Hospitalization)
  Sender: FDA-Public Use
  Company Number: None

PATIENT
  Age: 68 Year
  Sex: Female

DRUGS (9)
  1. CYMBALTA [Concomitant]
     Active Substance: DULOXETINE HYDROCHLORIDE
  2. AVODART [Concomitant]
     Active Substance: DUTASTERIDE
  3. MORPHINE [Concomitant]
     Active Substance: MORPHINE
  4. TARCEVA [Suspect]
     Active Substance: ERLOTINIB HYDROCHLORIDE
     Route: 048
     Dates: start: 20170502
  5. OMEPRAZOLE. [Concomitant]
     Active Substance: OMEPRAZOLE
  6. BUMETANIDE. [Concomitant]
     Active Substance: BUMETANIDE
  7. LEVEMIR [Concomitant]
     Active Substance: INSULIN DETEMIR
  8. TEMAZEPAM. [Concomitant]
     Active Substance: TEMAZEPAM
  9. ALLOPURINOL. [Concomitant]
     Active Substance: ALLOPURINOL

REACTIONS (4)
  - Dehydration [None]
  - Laboratory test abnormal [None]
  - Liver disorder [None]
  - Balance disorder [None]
